FAERS Safety Report 4315175-2 (Version None)
Quarter: 2004Q1

REPORT INFORMATION
  Report Type: 
  Country: None (occurrence: None)
  Receive Date: 20040310
  Receipt Date: 20040225
  Transmission Date: 20041129
  Serious: Yes (Hospitalization, Other)
  Sender: FDA-Public Use
  Company Number: US-JNJFOC-20031002780

PATIENT
  Age: 57 Year
  Sex: Male
  Weight: 86.1834 kg

DRUGS (10)
  1. REMICADE [Suspect]
     Dosage: 1 IN 1 DAY, INTRAVENOUS
     Route: 042
     Dates: start: 20000719
  2. CELEBREX [Suspect]
  3. NEXIOUM (ESOMEPRAZOLE) [Concomitant]
  4. FOLIC ACID [Concomitant]
  5. QUESTRAN (COLOSTYRAMINE) [Concomitant]
  6. HYDROCHLOROTHIAZIDE [Concomitant]
  7. ZOCOR [Concomitant]
  8. TYLENOL [Concomitant]
  9. IMODIUM [Concomitant]
  10. PREDNISONE [Concomitant]

REACTIONS (11)
  - ADRENAL INSUFFICIENCY [None]
  - ANAEMIA [None]
  - ANASTOMOTIC ULCER [None]
  - COLONIC POLYP [None]
  - DISSEMINATED TUBERCULOSIS [None]
  - HAEMORRHOIDS [None]
  - ILEAL ULCER [None]
  - POST PROCEDURAL COMPLICATION [None]
  - RECTAL ULCER [None]
  - RENAL FAILURE [None]
  - SEROMA [None]
